FAERS Safety Report 9216169 (Version 3)
Quarter: 2013Q2

REPORT INFORMATION
  Report Type: Spontaneous
  Country: JP (occurrence: JP)
  Receive Date: 20130408
  Receipt Date: 20130621
  Transmission Date: 20140414
  Serious: Yes (Other)
  Sender: FDA-Public Use
  Company Number: JP-UCBSA-082362

PATIENT
  Age: 45 Year
  Sex: Female

DRUGS (9)
  1. E KEPPRA [Suspect]
     Indication: EPILEPSY
     Dosage: DAILY DOSE: 2000 MG
     Route: 048
     Dates: start: 20121211, end: 20121218
  2. E KEPPRA [Suspect]
     Indication: EPILEPSY
     Dosage: DAILY DOSE: 3000 MG
     Route: 048
     Dates: start: 20121219, end: 20130129
  3. TEMODAL [Suspect]
     Dosage: DAILY DOSE: 300 MG
     Dates: start: 20121219, end: 20121220
  4. SODIUM VALPROATE [Concomitant]
     Indication: EPILEPSY
     Dosage: UNKNOWN DOSE
  5. PREDONINE [Concomitant]
     Dosage: DAILY DOSE: 20MG
  6. BAKTAR [Concomitant]
     Route: 048
  7. KYTRIL [Concomitant]
     Dosage: DAILY DOSE: 2 MG
  8. FERON [Concomitant]
     Dosage: DAILY DOSE: 600 IU
     Route: 042
  9. EXCEGRAN [Concomitant]
     Dosage: 200 MG
     Route: 048

REACTIONS (1)
  - Thrombocytopenia [Recovered/Resolved]
